FAERS Safety Report 6379958-X (Version None)
Quarter: 2009Q3

REPORT INFORMATION
  Report Type: 
  Country: None (occurrence: None)
  Receive Date: 20090928
  Receipt Date: 20090928
  Transmission Date: 20100115
  Serious: Yes (Hospitalization)
  Sender: FDA-Public Use
  Company Number: US-ROXANE LABORATORIES, INC.-2009-RO-00783RO

PATIENT
  Sex: Male

DRUGS (4)
  1. PREDNISONE TAB [Suspect]
  2. CYCLOPHOSPHAMIDE [Suspect]
     Route: 048
     Dates: start: 20090601, end: 20090901
  3. CYCLOSPORINE [Suspect]
     Route: 048
     Dates: start: 20090201, end: 20090501
  4. NEUPOGEN [Concomitant]
     Route: 030

REACTIONS (3)
  - ACUTE PULMONARY OEDEMA [None]
  - ENERGY INCREASED [None]
  - PNEUMONIA [None]
